FAERS Safety Report 9936179 (Version 1)
Quarter: 2014Q1

REPORT INFORMATION
  Report Type: Spontaneous
  Country: CH (occurrence: CH)
  Receive Date: 20140228
  Receipt Date: 20140228
  Transmission Date: 20141002
  Serious: Yes (Hospitalization)
  Sender: FDA-Public Use
  Company Number: PHHY2014CH021619

PATIENT
  Age: 93 Year
  Sex: Male
  Weight: 89 kg

DRUGS (9)
  1. DIGOXIN [Suspect]
     Indication: ATRIAL FIBRILLATION
     Dosage: 0.125 MG, QD
     Route: 048
     Dates: start: 2007
  2. MOGADON [Suspect]
     Indication: INSOMNIA
     Dosage: 2.5 MG DAILY
     Route: 048
     Dates: start: 2007, end: 20130918
  3. MOGADON [Suspect]
     Dosage: UNK UKN, UNK
  4. VALTREX [Suspect]
     Indication: HERPES ZOSTER
     Dosage: 1 G, TID
     Route: 048
     Dates: start: 20130923, end: 20130930
  5. ASPIRINE [Concomitant]
     Indication: ATRIAL FIBRILLATION
     Route: 048
     Dates: start: 20131002
  6. LASIX [Concomitant]
     Indication: CARDIAC FAILURE
     Dosage: 40 MG BID
     Route: 048
     Dates: start: 20130918
  7. ZYLORIC [Concomitant]
     Indication: GOUT
     Dosage: 100 MG, QD
     Route: 048
     Dates: start: 2007
  8. CLEXANE [Concomitant]
     Indication: THROMBOSIS PROPHYLAXIS
     Dosage: 40 MG
     Route: 040
     Dates: start: 20130918
  9. VITAMIN D3 [Concomitant]
     Indication: VITAMIN D DEFICIENCY
     Dosage: 800 IU, QD
     Route: 048
     Dates: start: 20131001

REACTIONS (1)
  - Persecutory delusion [Recovered/Resolved]
